FAERS Safety Report 7572741-9 (Version None)
Quarter: 2011Q2

REPORT INFORMATION
  Report Type: 
  Country: None (occurrence: None)
  Receive Date: 20110620
  Receipt Date: 20110608
  Transmission Date: 20111010
  Serious: Yes (Life-Threatening, Hospitalization)
  Sender: FDA-Public Use
  Company Number: 909942

PATIENT
  Age: 59 Year
  Sex: Female

DRUGS (2)
  1. DOBUTAMINE HYDROCHLORIDE [Suspect]
     Indication: CARDIAC STRESS TEST
     Dosage: 40 MCG/KG MIN PEAK DOSE
     Dates: start: 20110323, end: 20110323
  2. SONOVUE [Suspect]
     Indication: STRESS ECHOCARDIOGRAM
     Dosage: 3 ML, INTRAVENOUS
     Route: 042
     Dates: start: 20110323, end: 20110323

REACTIONS (7)
  - CARDIAC FAILURE [None]
  - ARTERIOSCLEROSIS CORONARY ARTERY [None]
  - CARDIAC ARREST [None]
  - CONDITION AGGRAVATED [None]
  - CONGESTIVE CARDIOMYOPATHY [None]
  - VENTRICULAR FIBRILLATION [None]
  - MULTI-ORGAN FAILURE [None]
